FAERS Safety Report 4665754-8 (Version None)
Quarter: 2005Q2

REPORT INFORMATION
  Report Type: 
  Country: None (occurrence: None)
  Receive Date: 20050517
  Receipt Date: 20050119
  Transmission Date: 20051028
  Serious: No
  Sender: FDA-Public Use
  Company Number: S05-USA-00544-01

PATIENT
  Sex: Male

DRUGS (1)
  1. NAMENDA [Suspect]
     Dates: start: 20040101

REACTIONS (1)
  - CONFUSIONAL STATE [None]
